FAERS Safety Report 5398956-6 (Version None)
Quarter: 2007Q3

REPORT INFORMATION
  Report Type: 
  Country: None (occurrence: None)
  Receive Date: 20070724
  Receipt Date: 20070724
  Transmission Date: 20080115
  Serious: Yes (Hospitalization)
  Sender: FDA-Public Use
  Company Number: None

PATIENT
  Age: 75 Year
  Sex: Male

DRUGS (6)
  1. MELLARIL [Suspect]
     Indication: SCHIZOPHRENIA
     Dosage: 100 MG OD PO; YEARS PTC
     Route: 048
  2. NORVASC [Concomitant]
  3. HYDROCHLOROTHIAZIDE [Concomitant]
  4. COGENTIN [Concomitant]
  5. POTASSIUM CHLORIDE [Concomitant]
  6. LIBRIUM [Concomitant]

REACTIONS (1)
  - PARKINSONISM [None]
